FAERS Safety Report 14173483 (Version 1)
Quarter: 2017Q4

REPORT INFORMATION
  Report Type: Spontaneous
  Country: US (occurrence: US)
  Receive Date: 20171109
  Receipt Date: 20171109
  Transmission Date: 20180321
  Serious: No
  Sender: FDA-Public Use
  Company Number: US-009507513-1710USA015246

PATIENT
  Age: 65 Year
  Sex: Female

DRUGS (17)
  1. SKELAXIN [Concomitant]
     Active Substance: METAXALONE
  2. VARIVAX [Suspect]
     Active Substance: VARICELLA-ZOSTER VIRUS STRAIN OKA/MERCK LIVE ANTIGEN
     Indication: PROPHYLAXIS
  3. POTASSIUM (UNSPECIFIED) [Concomitant]
     Active Substance: POTASSIUM
  4. PHENERGAN [Concomitant]
     Active Substance: PROMETHAZINE HYDROCHLORIDE
  5. DEXILANT [Concomitant]
     Active Substance: DEXLANSOPRAZOLE
  6. ZOFRAN [Concomitant]
     Active Substance: ONDANSETRON HYDROCHLORIDE
  7. ZOLOFT [Concomitant]
     Active Substance: SERTRALINE HYDROCHLORIDE
  8. SOTALOL. [Concomitant]
     Active Substance: SOTALOL
  9. IBUPROFEN. [Concomitant]
     Active Substance: IBUPROFEN
  10. SINGULAIR [Concomitant]
     Active Substance: MONTELUKAST SODIUM
     Route: 048
  11. STERILE DILUENT [Suspect]
     Active Substance: WATER
     Dosage: UNK
  12. ASPIRIN. [Concomitant]
     Active Substance: ASPIRIN
     Route: 048
  13. RAMIPRIL. [Concomitant]
     Active Substance: RAMIPRIL
  14. MAGNESIUM (UNSPECIFIED) [Concomitant]
     Active Substance: MAGNESIUM
  15. ZYRTEC [Concomitant]
     Active Substance: CETIRIZINE HYDROCHLORIDE
  16. SYNTHROID [Concomitant]
     Active Substance: LEVOTHYROXINE SODIUM
  17. DOMPERIDONE [Concomitant]
     Active Substance: DOMPERIDONE

REACTIONS (7)
  - Occupational exposure to product [Unknown]
  - Skin irritation [Not Recovered/Not Resolved]
  - Accidental exposure to product [Unknown]
  - Dry skin [Not Recovered/Not Resolved]
  - Exposure via skin contact [Unknown]
  - Exposure via eye contact [Unknown]
  - Urticaria [Unknown]

NARRATIVE: CASE EVENT DATE: 201710
